FAERS Safety Report 16862688 (Version 2)
Quarter: 2019Q4

REPORT INFORMATION
  Report Type: Spontaneous
  Country: US (occurrence: US)
  Receive Date: 20190927
  Receipt Date: 20191122
  Transmission Date: 20200122
  Serious: No
  Sender: FDA-Public Use
  Company Number: US-SUNOVION-2019SUN003967

PATIENT
  Sex: Female
  Weight: 90.7 kg

DRUGS (2)
  1. LATUDA [Suspect]
     Active Substance: LURASIDONE HYDROCHLORIDE
     Indication: BIPOLAR II DISORDER
     Dosage: 20MG, QD
     Route: 048
  2. LATUDA [Suspect]
     Active Substance: LURASIDONE HYDROCHLORIDE
     Dosage: ONE HALF 40MG TABLET CUT IN HALF, QD
     Route: 048

REACTIONS (4)
  - Off label use [Unknown]
  - Maternal exposure during pregnancy [Unknown]
  - Wrong technique in product usage process [Unknown]
  - Weight increased [Not Recovered/Not Resolved]
